FAERS Safety Report 10290408 (Version 1)
Quarter: 2014Q3

REPORT INFORMATION
  Report Type: Spontaneous
  Country: US (occurrence: None)
  Receive Date: 20140707
  Receipt Date: 20140707
  Transmission Date: 20150326
  Serious: Yes (Life-Threatening, Hospitalization)
  Sender: FDA-Public Use
  Company Number: None

PATIENT
  Age: 44 Year
  Sex: Female

DRUGS (2)
  1. AZITHROMYCIN [Suspect]
     Active Substance: AZITHROMYCIN ANHYDROUS
     Indication: RESPIRATORY DISORDER
     Dosage: 2 TABLETS ON DAY 1 THEN 1 UNTI?ONCE DAILY ?TAKEN BY MOUTH
     Route: 048
     Dates: start: 20140429, end: 20140602
  2. AZITHROMYCIN [Suspect]
     Active Substance: AZITHROMYCIN ANHYDROUS
     Indication: RESPIRATORY DISORDER
     Dosage: 2 TABLETS ON DAY 1 THEN 1 UNTI?ONCE DAILY ?TAKEN BY MOUTH
     Route: 048
     Dates: start: 20140618, end: 20140622

REACTIONS (5)
  - Dyspnoea [None]
  - Heart rate increased [None]
  - Cough [None]
  - Myocardial infarction [None]
  - Angina pectoris [None]

NARRATIVE: CASE EVENT DATE: 20140609
